FAERS Safety Report 4652556-1 (Version None)
Quarter: 2005Q2

REPORT INFORMATION
  Report Type: 
  Country: None (occurrence: None)
  Receive Date: 20050502
  Receipt Date: 20050415
  Transmission Date: 20051028
  Serious: Yes (Other)
  Sender: FDA-Public Use
  Company Number: DE-2005-000791

PATIENT
  Age: 40 Year
  Sex: Female

DRUGS (1)
  1. YASMIN [Suspect]
     Dosage: TAB(S), ORAL
     Route: 048
     Dates: start: 20030101

REACTIONS (4)
  - CONVULSION [None]
  - DYSPNOEA [None]
  - LOSS OF CONSCIOUSNESS [None]
  - SYNCOPE [None]
